FAERS Safety Report 7418572-1 (Version None)
Quarter: 2011Q2

REPORT INFORMATION
  Report Type: 
  Country: None (occurrence: None)
  Receive Date: 20110415
  Receipt Date: 20110408
  Transmission Date: 20111010
  Serious: Yes (Other)
  Sender: FDA-Public Use
  Company Number: PHHO2010DE15676

PATIENT
  Sex: Male
  Weight: 83.5 kg

DRUGS (5)
  1. FTY 720 [Suspect]
     Indication: MULTIPLE SCLEROSIS
     Dosage: DOSE BLINDED
     Route: 048
     Dates: start: 20080930, end: 20100315
  2. FTY 720 [Suspect]
     Dosage: 0.5 MG, QD
     Route: 048
     Dates: start: 20100315, end: 20101015
  3. TRILEPTAL [Concomitant]
     Indication: NEURALGIA
     Dosage: UNK
     Dates: start: 20070910
  4. GABAPENTIN [Concomitant]
     Indication: NEURALGIA
     Dosage: UNK
     Dates: start: 20070910
  5. AMITRIPTYLINE [Concomitant]
     Indication: DEPRESSION
     Dosage: UNK
     Dates: start: 20100521

REACTIONS (3)
  - PAPILLOMA [None]
  - MALIGNANT MELANOMA [None]
  - DYSPLASTIC NAEVUS SYNDROME [None]
